FAERS Safety Report 5484559-1 (Version None)
Quarter: 2007Q4

REPORT INFORMATION
  Report Type: 
  Country: None (occurrence: None)
  Receive Date: 20071012
  Receipt Date: 20071002
  Transmission Date: 20080405
  Serious: Yes (Hospitalization)
  Sender: FDA-Public Use
  Company Number: NL-PFIZER INC-2007084021

PATIENT
  Sex: Female
  Weight: 80 kg

DRUGS (5)
  1. SU-011,248 [Suspect]
     Indication: METASTATIC RENAL CELL CARCINOMA
     Route: 048
  2. LOPERAMIDE HCL [Concomitant]
     Route: 048
  3. ADALAT [Concomitant]
     Route: 048
  4. LORAZEPAM [Concomitant]
     Route: 048
  5. PARACETAMOL [Concomitant]
     Route: 048

REACTIONS (1)
  - RETINAL DETACHMENT [None]
